FAERS Safety Report 6341502-0 (Version None)
Quarter: 2009Q3

REPORT INFORMATION
  Report Type: 
  Country: None (occurrence: None)
  Receive Date: 20090904
  Receipt Date: 20090831
  Transmission Date: 20100115
  Serious: Yes (Hospitalization)
  Sender: FDA-Public Use
  Company Number: US-GENENTECH-289352

PATIENT
  Age: 70 Year
  Sex: Female

DRUGS (7)
  1. XOLAIR [Suspect]
     Indication: ASTHMA
     Dosage: 150 MG, 1/MONTH
     Route: 058
     Dates: start: 20080301
  2. FOSAMAX [Concomitant]
     Indication: DRUG USE FOR UNKNOWN INDICATION
  3. RHINOCORT [Concomitant]
     Indication: DRUG USE FOR UNKNOWN INDICATION
  4. ADVAIR HFA [Concomitant]
     Indication: DRUG USE FOR UNKNOWN INDICATION
  5. PROTONIX [Concomitant]
     Indication: DRUG USE FOR UNKNOWN INDICATION
  6. SPIRIVA [Concomitant]
     Indication: DRUG USE FOR UNKNOWN INDICATION
  7. ALBUTEROL [Concomitant]
     Indication: DRUG USE FOR UNKNOWN INDICATION

REACTIONS (1)
  - MYOCARDIAL INFARCTION [None]
